FAERS Safety Report 4842436-0 (Version None)
Quarter: 2005Q4

REPORT INFORMATION
  Report Type: 
  Country: None (occurrence: None)
  Receive Date: 20051125
  Receipt Date: 20051115
  Transmission Date: 20060501
  Serious: Yes (Other)
  Sender: FDA-Public Use
  Company Number: 2005089277

PATIENT
  Age: 32 Year
  Sex: Male

DRUGS (10)
  1. VIAGRA [Suspect]
     Indication: PULMONARY HYPERTENSION
     Dosage: 2 IN 1 D, ORAL
     Route: 048
     Dates: start: 20050501, end: 20050701
  2. FLOLAN [Suspect]
     Indication: PULMONARY HYPERTENSION
     Dosage: CONTINUOUS, INTRAVENOUS
     Route: 042
     Dates: start: 20030801
  3. ALDACTONE [Concomitant]
  4. LASIX [Concomitant]
  5. ZAROXOLYN [Concomitant]
  6. WARFARIN SODIUM [Concomitant]
  7. RHINOCORT [Concomitant]
  8. REMERON [Concomitant]
  9. PREVACID [Concomitant]
  10. DIGOXIN [Concomitant]

REACTIONS (5)
  - BACTERAEMIA [None]
  - CATHETER RELATED INFECTION [None]
  - LEUKOCYTOCLASTIC VASCULITIS [None]
  - OFF LABEL USE [None]
  - RASH [None]
